FAERS Safety Report 23808990 (Version 4)
Quarter: 2024Q3

REPORT INFORMATION
  Report Type: Spontaneous
  Country: GB (occurrence: GB)
  Receive Date: 20240502
  Receipt Date: 20240920
  Transmission Date: 20241017
  Serious: Yes (Hospitalization)
  Sender: MYLAN
  Company Number: GB-MYLANLABS-2024M1039520

PATIENT
  Sex: Female

DRUGS (1)
  1. CLOZARIL [Suspect]
     Active Substance: CLOZAPINE
     Indication: Schizophrenia
     Dosage: 150 MILLIGRAM, BID
     Route: 048
     Dates: start: 20230818, end: 20240423

REACTIONS (5)
  - Hospitalisation [Unknown]
  - Therapy interrupted [Unknown]
  - Incorrect dose administered [Unknown]
  - Medication error [Unknown]
  - Eosinophilia [Unknown]
